FAERS Safety Report 15386507 (Version 1)
Quarter: 2018Q3

REPORT INFORMATION
  Report Type: Spontaneous
  Country: JP (occurrence: JP)
  Receive Date: 20180914
  Receipt Date: 20180914
  Transmission Date: 20181010
  Serious: Yes (Death, Hospitalization)
  Sender: FDA-Public Use
  Company Number: JP-IMPAX LABORATORIES, INC-2018-IPXL-02929

PATIENT
  Age: 85 Year
  Sex: Male

DRUGS (2)
  1. EPIRUBICIN HYDROCHLORIDE. [Suspect]
     Active Substance: EPIRUBICIN HYDROCHLORIDE
     Indication: HEPATOCELLULAR CARCINOMA
     Dosage: 150 MG, UNK
     Route: 050
  2. EPIRUBICIN HYDROCHLORIDE. [Suspect]
     Active Substance: EPIRUBICIN HYDROCHLORIDE
     Indication: PRODUCT USE IN UNAPPROVED INDICATION

REACTIONS (7)
  - Renal failure [Fatal]
  - Gastrointestinal ulcer [Fatal]
  - Pancreatitis necrotising [Fatal]
  - Respiratory failure [Fatal]
  - Post embolisation syndrome [Not Recovered/Not Resolved]
  - Sepsis [Fatal]
  - Product use in unapproved indication [Unknown]
